FAERS Safety Report 10506759 (Version 1)
Quarter: 2014Q3

REPORT INFORMATION
  Report Type: Spontaneous
  Country: US (occurrence: None)
  Receive Date: 20140915
  Receipt Date: 20140915
  Transmission Date: 20150326
  Serious: Yes (Other)
  Sender: FDA-Public Use
  Company Number: 2013-US-004735

PATIENT
  Age: 35 Year
  Sex: Female

DRUGS (6)
  1. IRON (IRON) [Concomitant]
     Active Substance: IRON
  2. NUVIGIL [Suspect]
     Active Substance: ARMODAFINIL
     Indication: PRODUCT USED FOR UNKNOWN INDICATION
     Dates: end: 201312
  3. XYREM [Suspect]
     Active Substance: SODIUM OXYBATE
     Indication: NARCOLEPSY
     Route: 048
     Dates: start: 201310, end: 2013
  4. CYMBALTA [Concomitant]
     Active Substance: DULOXETINE HYDROCHLORIDE
  5. IBUPROFEN (IBUPROFEN SODIUM) [Concomitant]
  6. ROPINIROLE (ROPINIROLE) [Concomitant]
     Active Substance: ROPINIROLE

REACTIONS (2)
  - Fatigue [None]
  - Depression [None]

NARRATIVE: CASE EVENT DATE: 2013
